FAERS Safety Report 19503245 (Version 2)
Quarter: 2022Q2

REPORT INFORMATION
  Report Type: Spontaneous
  Country: US (occurrence: None)
  Receive Date: 20210707
  Receipt Date: 20220621
  Transmission Date: 20220721
  Serious: No
  Sender: FDA-Public Use
  Company Number: US-ROCHE-2760117

PATIENT
  Sex: Male
  Weight: 84.898 kg

DRUGS (15)
  1. CELLCEPT [Suspect]
     Active Substance: MYCOPHENOLATE MOFETIL
     Indication: Liver transplant
     Dosage: YES
     Route: 048
     Dates: start: 20160716
  2. PREDNISONE [Concomitant]
     Active Substance: PREDNISONE
     Indication: Liver transplant
     Dosage: NO
  3. PREDNISONE [Concomitant]
     Active Substance: PREDNISONE
     Dosage: NO
  4. PREDNISONE [Concomitant]
     Active Substance: PREDNISONE
     Dosage: NO
  5. PREDNISONE [Concomitant]
     Active Substance: PREDNISONE
     Dosage: X 2 WEEKS THEN STOPPED ;ONGOING: NO
  6. TACROLIMUS [Concomitant]
     Active Substance: TACROLIMUS
     Indication: Liver transplant
     Dosage: YES
     Route: 048
  7. TRESIBA [Concomitant]
     Active Substance: INSULIN DEGLUDEC
     Indication: Type 2 diabetes mellitus
     Dosage: EVERY NIGHT ;ONGOING: YES
  8. INSULIN HUMAN [Concomitant]
     Active Substance: INSULIN HUMAN
     Indication: Type 2 diabetes mellitus
     Dosage: YES
  9. LISINOPRIL [Concomitant]
     Active Substance: LISINOPRIL
     Indication: Hypertension
     Dosage: YES
     Route: 048
  10. NIFEDIPINE [Concomitant]
     Active Substance: NIFEDIPINE
     Indication: Hypertension
     Dosage: YES
     Route: 048
  11. ATENOLOL [Concomitant]
     Active Substance: ATENOLOL
     Indication: Hypertension
     Dosage: YES
     Route: 048
  12. PANTOPRAZOLE [Concomitant]
     Active Substance: PANTOPRAZOLE
     Indication: Gastric ulcer
  13. BIOTIN [Concomitant]
     Active Substance: BIOTIN
     Indication: Alopecia
     Dosage: YES
     Route: 048
  14. MAGNESIUM CLOFIBRATE [Concomitant]
     Active Substance: MAGNESIUM CLOFIBRATE
     Dosage: YES
     Route: 048
  15. TRAMADOL [Concomitant]
     Active Substance: TRAMADOL
     Indication: Pain
     Dosage: YES

REACTIONS (6)
  - Alopecia [Recovering/Resolving]
  - Tenderness [Not Recovered/Not Resolved]
  - Ear swelling [Not Recovered/Not Resolved]
  - Electric shock [Not Recovered/Not Resolved]
  - Tinnitus [Not Recovered/Not Resolved]
  - Headache [Not Recovered/Not Resolved]

NARRATIVE: CASE EVENT DATE: 20200101
